FAERS Safety Report 16045455 (Version 1)
Quarter: 2019Q1

REPORT INFORMATION
  Report Type: Spontaneous
  Country: US (occurrence: US)
  Receive Date: 20190307
  Receipt Date: 20190307
  Transmission Date: 20190418
  Serious: No
  Sender: FDA-Public Use
  Company Number: US-SUN PHARMACEUTICAL INDUSTRIES LTD-2018R1-197961

PATIENT
  Sex: Male

DRUGS (4)
  1. CLINDAMYCIN. [Suspect]
     Active Substance: CLINDAMYCIN
     Indication: ENDODONTIC PROCEDURE
     Dosage: 300 MILLIGRAM, QID
     Route: 048
     Dates: start: 20181101
  2. TYLENOL [Concomitant]
     Active Substance: ACETAMINOPHEN
     Indication: PAIN IN JAW
     Dosage: 325 MILLIGRAM, Q4H
     Route: 048
     Dates: start: 20181030
  3. AMOXICILLIN. [Concomitant]
     Active Substance: AMOXICILLIN
     Indication: PROPHYLAXIS
     Dosage: 500 MILLIGRAM, QID
     Route: 048
     Dates: start: 20181029
  4. ADVIL [Concomitant]
     Active Substance: IBUPROFEN
     Indication: PAIN IN JAW
     Dosage: 200 MILLIGRAM, Q4H
     Route: 048
     Dates: start: 20181030

REACTIONS (1)
  - Rash [Not Recovered/Not Resolved]

NARRATIVE: CASE EVENT DATE: 20181102
